FAERS Safety Report 5952176-2 (Version None)
Quarter: 2008Q4

REPORT INFORMATION
  Report Type: 
  Country: None (occurrence: None)
  Receive Date: 20081113
  Receipt Date: 20080731
  Transmission Date: 20090506
  Serious: No
  Sender: FDA-Public Use
  Company Number: A0741662A

PATIENT
  Age: 43 Year
  Sex: Male
  Weight: 111 kg

DRUGS (4)
  1. COREG [Suspect]
     Indication: HYPERTENSION
     Route: 048
     Dates: start: 20080501
  2. ANDROGEL [Suspect]
     Dosage: 3.75G PER DAY
     Route: 065
     Dates: start: 20060101
  3. BENICAR [Concomitant]
  4. HYDRALAZINE HCL [Concomitant]

REACTIONS (2)
  - BLOOD TESTOSTERONE DECREASED [None]
  - DRUG INTERACTION [None]
